FAERS Safety Report 7153945-6 (Version None)
Quarter: 2010Q4

REPORT INFORMATION
  Report Type: 
  Country: None (occurrence: None)
  Receive Date: 20101213
  Receipt Date: 20101207
  Transmission Date: 20110411
  Serious: Yes (Death, Hospitalization, Other)
  Sender: FDA-Public Use
  Company Number: JP-PFIZER INC-2010138892

PATIENT
  Age: 71 Year
  Sex: Female
  Weight: 32.16 kg

DRUGS (10)
  1. SUTENT [Suspect]
     Indication: RENAL CELL CARCINOMA
     Dosage: 50 MG, 1X/DAY
     Route: 048
     Dates: start: 20100610, end: 20100624
  2. SUTENT [Suspect]
     Dosage: 37.5 MG, 1X/DAY
     Route: 048
     Dates: start: 20100716, end: 20100810
  3. SUTENT [Suspect]
     Dosage: 37.5 MG, 1X/DAY
     Route: 048
     Dates: start: 20100825, end: 20100921
  4. BLOPRESS [Concomitant]
     Indication: HYPERTENSION
     Dosage: 8 MG, 1X/DAY
     Route: 048
  5. NORVASC [Concomitant]
     Indication: HYPERTENSION
     Dosage: 2.5 MG, 1X/DAY
     Route: 048
  6. LIVALO [Concomitant]
     Indication: HYPERTENSION
     Dosage: 1 MG, 1X/DAY
     Route: 048
  7. TAGAMET [Concomitant]
     Indication: GASTRIC ULCER
     Dosage: 200 MG, 2X/DAY
     Route: 048
  8. CALBLOCK [Concomitant]
     Indication: HYPERTENSION
     Dosage: 8 MG, 2X/DAY
     Route: 048
  9. OLMETEC [Concomitant]
     Indication: HYPERTENSION
     Dosage: 20 MG, 2X/DAY
     Route: 048
  10. LASIX [Concomitant]
     Indication: OEDEMA
     Dosage: 20 MG, 1X/DAY
     Route: 048

REACTIONS (10)
  - ALANINE AMINOTRANSFERASE INCREASED [None]
  - ASPARTATE AMINOTRANSFERASE INCREASED [None]
  - BLOOD ALKALINE PHOSPHATASE INCREASED [None]
  - BLOOD CALCIUM INCREASED [None]
  - BLOOD LACTATE DEHYDROGENASE INCREASED [None]
  - DISEASE PROGRESSION [None]
  - GAMMA-GLUTAMYLTRANSFERASE INCREASED [None]
  - GASTROINTESTINAL HAEMORRHAGE [None]
  - MALAISE [None]
  - RENAL CELL CARCINOMA [None]
